FAERS Safety Report 6392061-8 (Version None)
Quarter: 2009Q4

REPORT INFORMATION
  Report Type: 
  Country: None (occurrence: None)
  Receive Date: 20091007
  Receipt Date: 20090930
  Transmission Date: 20100525
  Serious: Yes (Other)
  Sender: FDA-Public Use
  Company Number: EG-ROCHE-660436

PATIENT
  Age: 69 Year
  Weight: 125 kg

DRUGS (4)
  1. XELODA [Suspect]
     Dosage: FREQUENCY TWICE DAILY FOR 2 WEEKS EVERY 3 WEEKS.
     Route: 048
  2. TAXOL [Concomitant]
     Route: 065
  3. ZOFRAN [Concomitant]
     Indication: VOMITING
     Route: 042
  4. DECADRON [Concomitant]
     Dosage: FREQUENCY EVERY 8 HOURS FOR 48 HOURS.
     Route: 042

REACTIONS (2)
  - CONVULSION [None]
  - EPILEPSY [None]
